FAERS Safety Report 10464634 (Version 1)
Quarter: 2014Q3

REPORT INFORMATION
  Report Type: Spontaneous
  Country: US (occurrence: US)
  Receive Date: 20140919
  Receipt Date: 20140919
  Transmission Date: 20150326
  Serious: Yes (Other)
  Sender: FDA-Public Use
  Company Number: US-PFIZER INC-2014252634

PATIENT
  Age: 30 Year
  Sex: Male
  Weight: 72.11 kg

DRUGS (1)
  1. XYNTHA [Suspect]
     Active Substance: ANTIHEMOPHILIC FACTOR, HUMAN RECOMBINANT RESIDUES 743-1636 DELETED
     Indication: FACTOR VIII DEFICIENCY
     Dosage: 3000 IU, THREE TIMES WEEKLY ON MONDAY, WEDNESDAY AND FRIDAY (MONTHLY DOSAGE: 39,000 IU)
     Route: 042
     Dates: start: 20140829

REACTIONS (10)
  - Gait disturbance [Unknown]
  - Joint stiffness [Unknown]
  - Joint swelling [Unknown]
  - Pain [Unknown]
  - Joint range of motion decreased [Unknown]
  - Arthralgia [Unknown]
  - Constipation [Unknown]
  - Haemarthrosis [Unknown]
  - Dry skin [Unknown]
  - Off label use [Unknown]

NARRATIVE: CASE EVENT DATE: 20140829
